FAERS Safety Report 19799428 (Version 1)
Quarter: 2021Q3

REPORT INFORMATION
  Report Type: Spontaneous
  Country: US (occurrence: US)
  Receive Date: 20210907
  Receipt Date: 20210907
  Transmission Date: 20211014
  Serious: No
  Sender: FDA-Public Use
  Company Number: US-ASTRAZENECA-2021A677623

PATIENT
  Age: 59 Year
  Sex: Female

DRUGS (2)
  1. FASENRA [Suspect]
     Active Substance: BENRALIZUMAB
     Dosage: UNKNOWN DOSE, EVERY FOUR WEEKS
     Route: 065
  2. FASENRA [Suspect]
     Active Substance: BENRALIZUMAB
     Dosage: UNKNOWN DOSE, EVERY EIGHT WEEKS
     Route: 065
     Dates: start: 2020

REACTIONS (8)
  - Abdominal pain upper [Not Recovered/Not Resolved]
  - Bone pain [Unknown]
  - Chills [Unknown]
  - Pain [Unknown]
  - Malaise [Unknown]
  - Sleep disorder due to general medical condition, insomnia type [Not Recovered/Not Resolved]
  - Suspected COVID-19 [Unknown]
  - Fatigue [Not Recovered/Not Resolved]

NARRATIVE: CASE EVENT DATE: 202108
